FAERS Safety Report 11386542 (Version 1)
Quarter: 2015Q3

REPORT INFORMATION
  Report Type: Spontaneous
  Country: US (occurrence: None)
  Receive Date: 20150814
  Receipt Date: 20150814
  Transmission Date: 20151125
  Serious: Yes (Hospitalization)
  Sender: FDA-Public Use
  Company Number: None

PATIENT
  Age: 11 Year
  Sex: Male
  Weight: 36.29 kg

DRUGS (1)
  1. CANDIDA ALBICANS EXTRACT 1:10 W/V JUBILANT HOLLISTERSTIER LLC [Suspect]
     Active Substance: ALLERGENIC EXTRACT- CANDIDA
     Indication: SKIN PAPILLOMA
     Dosage: 0.05 CC  ONE TIME INTRADERMAL
     Route: 023
     Dates: start: 20150807, end: 20150807

REACTIONS (4)
  - Hypersensitivity [None]
  - Product formulation issue [None]
  - Product label issue [None]
  - Off label use [None]

NARRATIVE: CASE EVENT DATE: 20150807
